FAERS Safety Report 23082232 (Version 1)
Quarter: 2023Q4

REPORT INFORMATION
  Report Type: Spontaneous
  Country: US (occurrence: US)
  Receive Date: 20231019
  Receipt Date: 20231019
  Transmission Date: 20240110
  Serious: Yes (Life-Threatening, Hospitalization, Other)
  Sender: FDA-Public Use
  Company Number: US-MLMSERVICE-20231011-4590283-1

PATIENT
  Age: 39 Year
  Sex: Male

DRUGS (13)
  1. HALOPERIDOL [Suspect]
     Active Substance: HALOPERIDOL
     Indication: Alcohol withdrawal syndrome
     Route: 065
  2. QUETIAPINE [Suspect]
     Active Substance: QUETIAPINE
     Indication: Withdrawal syndrome
     Route: 065
  3. KETAMINE [Concomitant]
     Active Substance: KETAMINE
     Indication: Withdrawal syndrome
  4. KETAMINE [Concomitant]
     Active Substance: KETAMINE
     Indication: Sedative therapy
  5. KETAMINE [Concomitant]
     Active Substance: KETAMINE
     Indication: Alcohol withdrawal syndrome
  6. MIDAZOLAM [Concomitant]
     Active Substance: MIDAZOLAM
     Indication: Sedative therapy
  7. MIDAZOLAM [Concomitant]
     Active Substance: MIDAZOLAM
     Indication: Alcohol withdrawal syndrome
  8. PROPOFOL [Concomitant]
     Active Substance: PROPOFOL
     Indication: Withdrawal syndrome
  9. PROPOFOL [Concomitant]
     Active Substance: PROPOFOL
     Indication: Alcohol withdrawal syndrome
  10. FENTANYL [Concomitant]
     Active Substance: FENTANYL
     Indication: Withdrawal syndrome
  11. FENTANYL [Concomitant]
     Active Substance: FENTANYL
     Indication: Alcohol withdrawal syndrome
  12. FENTANYL [Concomitant]
     Active Substance: FENTANYL
     Indication: Sedative therapy
  13. LORAZEPAM [Concomitant]
     Active Substance: LORAZEPAM
     Indication: Alcohol withdrawal syndrome

REACTIONS (1)
  - Hyperthermia [Unknown]
